FAERS Safety Report 17603297 (Version 2)
Quarter: 2020Q2

REPORT INFORMATION
  Report Type: Report from Study
  Country: US (occurrence: US)
  Receive Date: 20200331
  Receipt Date: 20200416
  Transmission Date: 20200713
  Serious: Yes (Hospitalization, Other)
  Sender: FDA-Public Use
  Company Number: US-ROCHE-2046718

PATIENT
  Age: 56 Year
  Sex: Female

DRUGS (28)
  1. VALGANCICLOVIR. [Suspect]
     Active Substance: VALGANCICLOVIR
     Indication: LUNG TRANSPLANT
     Route: 048
     Dates: start: 20170112
  2. LABETALOL [Concomitant]
     Active Substance: LABETALOL\LABETALOL HYDROCHLORIDE
     Route: 065
  3. AZITHROMYCIN ANHYDROUS. [Concomitant]
     Active Substance: AZITHROMYCIN ANHYDROUS
     Route: 065
  4. NOXAFIL [Concomitant]
     Active Substance: POSACONAZOLE
  5. ALENDRONATE [Concomitant]
     Active Substance: ALENDRONATE SODIUM
  6. ROSUVASTATIN. [Concomitant]
     Active Substance: ROSUVASTATIN
  7. OMEGA [OMEPRAZOLE] [Concomitant]
     Active Substance: OMEPRAZOLE
  8. METOPROLOL. [Concomitant]
     Active Substance: METOPROLOL
  9. LEVAQUIN [Concomitant]
     Active Substance: LEVOFLOXACIN
     Route: 065
  10. COTRIMOXAZOLE [Concomitant]
     Active Substance: SULFAMETHOXAZOLE\TRIMETHOPRIM
  11. TACROLIMUS. [Concomitant]
     Active Substance: TACROLIMUS
  12. VALGANCICLOVIR. [Suspect]
     Active Substance: VALGANCICLOVIR
     Route: 048
  13. LANTUS [Concomitant]
     Active Substance: INSULIN GLARGINE
  14. CHLORTHALIDONE. [Concomitant]
     Active Substance: CHLORTHALIDONE
  15. PANTOPRAZOLE [Concomitant]
     Active Substance: PANTOPRAZOLE
  16. PREDNISONE. [Concomitant]
     Active Substance: PREDNISONE
  17. POSACONAZOLE [Concomitant]
     Active Substance: POSACONAZOLE
  18. ALENDRONATE [Concomitant]
     Active Substance: ALENDRONATE SODIUM
  19. ASPIRIN [ACETYLSALICYLIC ACID] [Concomitant]
     Active Substance: ASPIRIN
  20. LACTULOSE. [Concomitant]
     Active Substance: LACTULOSE
  21. ELIQUIS [Concomitant]
     Active Substance: APIXABAN
  22. CELLCEPT [Suspect]
     Active Substance: MYCOPHENOLATE MOFETIL\MYCOPHENOLATE MOFETIL HYDROCHLORIDE
     Indication: PRODUCT USED FOR UNKNOWN INDICATION
     Route: 065
  23. CHOLECALCIFEROL [Concomitant]
     Active Substance: CHOLECALCIFEROL
  24. LOSARTAN. [Concomitant]
     Active Substance: LOSARTAN
  25. METFORMIN [Concomitant]
     Active Substance: METFORMIN HYDROCHLORIDE
     Route: 065
  26. NOXAFIL [Concomitant]
     Active Substance: POSACONAZOLE
  27. LOSARTAN. [Concomitant]
     Active Substance: LOSARTAN
     Route: 065
  28. IMODIUM [Concomitant]
     Active Substance: LOPERAMIDE HYDROCHLORIDE

REACTIONS (17)
  - Cytopenia [Recovered/Resolved]
  - Ankle fracture [Recovering/Resolving]
  - Diarrhoea [Recovered/Resolved]
  - Intentional product use issue [Unknown]
  - Abdominal distension [Unknown]
  - Hypokalaemia [Unknown]
  - Oedema [Unknown]
  - Deep vein thrombosis [Recovering/Resolving]
  - Fall [Unknown]
  - Cellulitis [Unknown]
  - Lower limb fracture [Recovering/Resolving]
  - Overweight [Unknown]
  - Ascites [Unknown]
  - Hypoglycaemia [Recovering/Resolving]
  - Weight increased [Unknown]
  - Oedema peripheral [Unknown]
  - Off label use [Unknown]

NARRATIVE: CASE EVENT DATE: 2018
